FAERS Safety Report 12790768 (Version 1)
Quarter: 2016Q3

REPORT INFORMATION
  Report Type: Spontaneous
  Country: US (occurrence: US)
  Receive Date: 20160929
  Receipt Date: 20160929
  Transmission Date: 20161109
  Serious: Yes (Hospitalization)
  Sender: FDA-Public Use
  Company Number: US-BAUSCH-BL-2016-023791

PATIENT
  Age: 61 Year
  Sex: Male

DRUGS (3)
  1. XIFAXAN [Suspect]
     Active Substance: RIFAXIMIN
     Indication: HEPATIC ENCEPHALOPATHY
     Route: 048
     Dates: start: 20160922
  2. XIFAXAN [Suspect]
     Active Substance: RIFAXIMIN
     Indication: POSTOPERATIVE CARE
     Route: 048
     Dates: start: 201602
  3. LACTULOSE. [Suspect]
     Active Substance: LACTULOSE
     Indication: BOWEL MOVEMENT IRREGULARITY
     Route: 065

REACTIONS (4)
  - Blood glucose fluctuation [Unknown]
  - Treatment noncompliance [Unknown]
  - Confusional state [Unknown]
  - Ammonia increased [Recovering/Resolving]

NARRATIVE: CASE EVENT DATE: 2016
